FAERS Safety Report 6268248-1 (Version None)
Quarter: 2009Q3

REPORT INFORMATION
  Report Type: 
  Country: None (occurrence: None)
  Receive Date: 20090713
  Receipt Date: 20090713
  Transmission Date: 20100115
  Serious: Yes (Life-Threatening, Hospitalization, Other)
  Sender: FDA-Public Use
  Company Number: None

PATIENT
  Age: 54 Year
  Sex: Female
  Weight: 72.5755 kg

DRUGS (1)
  1. DOXYCYCLINE HYCLATE [Suspect]
     Indication: DRY EYE
     Dosage: 1 CAPSULE 2 TIMES A DAY PO
     Route: 048
     Dates: start: 20090503, end: 20090710

REACTIONS (11)
  - ANXIETY [None]
  - DEPRESSION [None]
  - EYE IRRITATION [None]
  - FATIGUE [None]
  - HEADACHE [None]
  - MIGRAINE [None]
  - NAUSEA [None]
  - NIGHTMARE [None]
  - PANIC DISORDER [None]
  - SKIN BURNING SENSATION [None]
  - VISION BLURRED [None]
